FAERS Safety Report 25860135 (Version 2)
Quarter: 2025Q4

REPORT INFORMATION
  Report Type: Spontaneous
  Country: US (occurrence: US)
  Receive Date: 20250929
  Receipt Date: 20251029
  Transmission Date: 20260117
  Serious: Yes (Other)
  Sender: ARDELYX
  Company Number: US-ARDELYX-2025ARDX007036

PATIENT
  Age: 52 Year
  Sex: Female

DRUGS (2)
  1. IBSRELA [Suspect]
     Active Substance: TENAPANOR HYDROCHLORIDE
     Indication: Irritable bowel syndrome
     Dosage: 50 MG, BID
     Route: 048
     Dates: start: 20250605
  2. LINZESS [Concomitant]
     Active Substance: LINACLOTIDE
     Indication: Bowel movement irregularity
     Dosage: UNK
     Route: 065

REACTIONS (3)
  - Intracranial aneurysm [Unknown]
  - Cerebrovascular accident [Unknown]
  - Drug ineffective [Unknown]

NARRATIVE: CASE EVENT DATE: 20250601
